FAERS Safety Report 6118306-7 (Version None)
Quarter: 2009Q1

REPORT INFORMATION
  Report Type: 
  Country: None (occurrence: None)
  Receive Date: 20090314
  Receipt Date: 20090213
  Transmission Date: 20090719
  Serious: No
  Sender: FDA-Public Use
  Company Number: US-ABBOTT-09P-163-0557511-00

PATIENT
  Sex: Female
  Weight: 86.26 kg

DRUGS (2)
  1. HUMIRA [Suspect]
     Indication: RHEUMATOID ARTHRITIS
     Route: 058
     Dates: start: 20090130
  2. MORPHINE [Concomitant]
     Indication: ARTHRALGIA
     Dosage: UNSURE OF STRENGTH
     Route: 048

REACTIONS (2)
  - ARTHRALGIA [None]
  - EXOSTOSIS [None]
